FAERS Safety Report 5374703-9 (Version None)
Quarter: 2007Q2

REPORT INFORMATION
  Report Type: 
  Country: None (occurrence: None)
  Receive Date: 20070629
  Receipt Date: 20070619
  Transmission Date: 20071010
  Serious: Yes (Life-Threatening, Hospitalization)
  Sender: FDA-Public Use
  Company Number: US-JNJFOC-20070500798

PATIENT
  Sex: Male
  Weight: 90.7 kg

DRUGS (6)
  1. REMICADE [Suspect]
     Route: 042
  2. REMICADE [Suspect]
     Route: 042
  3. REMICADE [Suspect]
     Route: 042
  4. REMICADE [Suspect]
     Indication: COLITIS
     Route: 042
  5. ANTIHISTAMINES [Concomitant]
     Indication: PREMEDICATION
  6. STEROIDS [Concomitant]
     Indication: PREMEDICATION

REACTIONS (3)
  - DRUG INEFFECTIVE [None]
  - INFUSION RELATED REACTION [None]
  - MYOCARDIAL INFARCTION [None]
